FAERS Safety Report 4500891-X (Version None)
Quarter: 2004Q4

REPORT INFORMATION
  Report Type: 
  Country: None (occurrence: None)
  Receive Date: 20041109
  Receipt Date: 20041027
  Transmission Date: 20050328
  Serious: Yes (Other)
  Sender: FDA-Public Use
  Company Number: 2004063989

PATIENT
  Age: 19 Year
  Sex: Female

DRUGS (3)
  1. ZOLOFT [Suspect]
     Indication: ABNORMAL BEHAVIOUR
     Dosage: 100 MG (100 MG, 1 IN 1 D)
     Dates: start: 20040101
  2. ZOLOFT [Suspect]
     Indication: IMPULSE-CONTROL DISORDER
     Dosage: 100 MG (100 MG, 1 IN 1 D)
     Dates: start: 20040101
  3. TOPIRAMATE [Suspect]
     Indication: ILL-DEFINED DISORDER
     Dosage: 250 MG (125 MG, 2 IN 1 D)

REACTIONS (5)
  - ABNORMAL BEHAVIOUR [None]
  - DRUG EXPOSURE DURING PREGNANCY [None]
  - IMPULSE-CONTROL DISORDER [None]
  - REFUSAL OF TREATMENT BY PATIENT [None]
  - STILLBIRTH [None]
